FAERS Safety Report 4779928-9 (Version None)
Quarter: 2005Q3

REPORT INFORMATION
  Report Type: 
  Country: None (occurrence: None)
  Receive Date: 20050914
  Receipt Date: 20050620
  Transmission Date: 20060218
  Serious: Yes (Hospitalization)
  Sender: FDA-Public Use
  Company Number: 163-20785-05060329

PATIENT
  Age: 64 Year
  Sex: Female
  Weight: 77.5651 kg

DRUGS (6)
  1. THALOMID [Suspect]
     Indication: OVARIAN CANCER
     Dosage: 200 MG, QHS, ORAL
     Route: 048
  2. TOPOTECAN (TOPOTECAN) [Suspect]
     Indication: OVARIAN CANCER
     Dosage: 1.25 MG/M2, DAYS 1-5, INTRAVENOUS
     Route: 042
     Dates: start: 20050601, end: 20050605
  3. TENORMIN [Concomitant]
  4. ASPIRIN [Concomitant]
  5. MAGNESIUM (MAGNESIUM) (TABLETS) [Concomitant]
  6. AMILORIDE HCL [Concomitant]

REACTIONS (6)
  - ASTHENIA [None]
  - EAR DISCOMFORT [None]
  - FEBRILE NEUTROPENIA [None]
  - INCREASED UPPER AIRWAY SECRETION [None]
  - PANCYTOPENIA [None]
  - PHARYNGITIS [None]
